FAERS Safety Report 18148433 (Version 3)
Quarter: 2021Q2

REPORT INFORMATION
  Report Type: Spontaneous
  Country: US (occurrence: US)
  Receive Date: 20200813
  Receipt Date: 20210512
  Transmission Date: 20210717
  Serious: Yes (Hospitalization, Other)
  Sender: FDA-Public Use
  Company Number: US-PFIZER INC-2020228061

PATIENT
  Age: 30 Year
  Sex: Male
  Weight: 83.91 kg

DRUGS (3)
  1. GABAPENTIN. [Concomitant]
     Active Substance: GABAPENTIN
     Dosage: UNK
  2. VIAGRA [Suspect]
     Active Substance: SILDENAFIL CITRATE
     Indication: EPIDIDYMITIS
     Dosage: 100 MG, AS NEEDED (100MG, BY MOUTH AS NEEDED)
     Route: 048
     Dates: start: 20200810
  3. VIAGRA [Suspect]
     Active Substance: SILDENAFIL CITRATE
     Indication: ERECTILE DYSFUNCTION

REACTIONS (6)
  - Painful erection [Unknown]
  - Overdose [Unknown]
  - Urinary retention [Unknown]
  - Penile pain [Unknown]
  - Dysuria [Unknown]
  - Erection increased [Unknown]
